FAERS Safety Report 11548274 (Version 1)
Quarter: 2015Q3

REPORT INFORMATION
  Report Type: Spontaneous
  Country: US (occurrence: US)
  Receive Date: 20150924
  Receipt Date: 20150924
  Transmission Date: 20151125
  Serious: No
  Sender: FDA-Public Use
  Company Number: US-INCYTE CORPORATION-2015IN001108

PATIENT

DRUGS (2)
  1. MIRALAX [Concomitant]
     Active Substance: POLYETHYLENE GLYCOL 3350
  2. JAKAFI [Suspect]
     Active Substance: RUXOLITINIB
     Indication: MYELOFIBROSIS
     Dosage: 10 MG, QD
     Route: 048
     Dates: start: 201411

REACTIONS (3)
  - Dysuria [Not Recovered/Not Resolved]
  - Constipation [Not Recovered/Not Resolved]
  - Pollakiuria [Not Recovered/Not Resolved]
